FAERS Safety Report 8073488-5 (Version None)
Quarter: 2012Q1

REPORT INFORMATION
  Report Type: 
  Country: None (occurrence: None)
  Receive Date: 20120126
  Receipt Date: 20120126
  Transmission Date: 20120608
  Serious: Yes (Other)
  Sender: FDA-Public Use
  Company Number: None

PATIENT
  Age: 28 Year
  Sex: Female
  Weight: 61.234 kg

DRUGS (3)
  1. SERTRALINE HYDROCHLORIDE [Suspect]
     Indication: ANXIETY
     Dosage: 50.0 MG
     Route: 048
     Dates: start: 20091001, end: 20111001
  2. SERTRALINE HYDROCHLORIDE [Suspect]
     Indication: POSTPARTUM DEPRESSION
     Dosage: 50.0 MG
     Route: 048
     Dates: start: 20091001, end: 20111001
  3. SERTRALINE HYDROCHLORIDE [Suspect]
     Indication: POSTPARTUM DISORDER
     Dosage: 50.0 MG
     Route: 048
     Dates: start: 20091001, end: 20111001

REACTIONS (6)
  - EAR INFECTION [None]
  - EXPOSURE DURING BREAST FEEDING [None]
  - FLATULENCE [None]
  - GASTROINTESTINAL PAIN [None]
  - SINUS DISORDER [None]
  - FEEDING DISORDER NEONATAL [None]
